FAERS Safety Report 9597133 (Version 1)
Quarter: 2013Q4

REPORT INFORMATION
  Report Type: Spontaneous
  Country: SE (occurrence: SE)
  Receive Date: 20131004
  Receipt Date: 20131004
  Transmission Date: 20140711
  Serious: Yes (Other)
  Sender: FDA-Public Use
  Company Number: SE-UCBSA-099036

PATIENT
  Age: 19 Year
  Sex: Male

DRUGS (1)
  1. KEPPRA [Suspect]
     Dosage: 250 MG AND 1000MG

REACTIONS (6)
  - Grand mal convulsion [Recovered/Resolved]
  - Salivary hypersecretion [Recovered/Resolved]
  - Ataxia [Recovered/Resolved]
  - Listless [Recovered/Resolved]
  - Sleep disorder [Recovered/Resolved]
  - Aggression [Recovered/Resolved]
